FAERS Safety Report 9580430 (Version 1)
Quarter: 2013Q3

REPORT INFORMATION
  Report Type: Spontaneous
  Country: US (occurrence: None)
  Receive Date: 20130916
  Receipt Date: 20130916
  Transmission Date: 20140515
  Serious: Yes (Other)
  Sender: FDA-Public Use
  Company Number: JPI-P-023768

PATIENT
  Age: 38 Year
  Sex: Female
  Weight: 97.07 kg

DRUGS (7)
  1. XYREM (500 MILLIGRAM/MILLILITERS, SOLUTION) (SODIUM OXYBATE) [Suspect]
     Indication: CATAPLEXY
     Route: 048
     Dates: start: 20060119
  2. MORPHINE [Suspect]
     Indication: BACK PAIN
     Dates: start: 201201, end: 201206
  3. TEMAZEPAM [Suspect]
     Indication: SLEEP DISORDER
     Dates: end: 201206
  4. AMITRIPTYLINE [Suspect]
     Indication: SLEEP DISORDER
  5. LORAZEPAM [Concomitant]
  6. MILNACIPRAN [Concomitant]
  7. PREGABALIN [Concomitant]

REACTIONS (5)
  - Sleep apnoea syndrome [None]
  - Fibromyalgia [None]
  - Condition aggravated [None]
  - Somnambulism [None]
  - Depression [None]
